FAERS Safety Report 9302258 (Version 1)
Quarter: 2013Q2

REPORT INFORMATION
  Report Type: Spontaneous
  Country: BR (occurrence: BR)
  Receive Date: 20130522
  Receipt Date: 20130522
  Transmission Date: 20140414
  Serious: Yes (Other)
  Sender: FDA-Public Use
  Company Number: BR-AMGEN-BRASP2013035306

PATIENT
  Age: 52 Year
  Sex: Female
  Weight: 78 kg

DRUGS (2)
  1. ENBREL [Suspect]
     Indication: RHEUMATOID ARTHRITIS
     Dosage: UNK
     Dates: start: 200907, end: 201210
  2. ENBREL [Suspect]
     Dosage: 50 MG, ONCE WEEKLY
     Dates: start: 201210, end: 201301

REACTIONS (5)
  - Diabetes mellitus [Unknown]
  - Blood cholesterol abnormal [Unknown]
  - Swelling [Unknown]
  - Pain [Not Recovered/Not Resolved]
  - Drug ineffective [Unknown]
